FAERS Safety Report 9902785 (Version 3)
Quarter: 2014Q1

REPORT INFORMATION
  Report Type: Spontaneous
  Country: JP (occurrence: JP)
  Receive Date: 20140217
  Receipt Date: 20140318
  Transmission Date: 20141002
  Serious: Yes (Death)
  Sender: FDA-Public Use
  Company Number: PHHY2014JP004916

PATIENT
  Age: 59 Year
  Sex: Female

DRUGS (1)
  1. VOLTAREN [Suspect]
     Indication: PAIN
     Dosage: UNK UKN, UNK
     Route: 067

REACTIONS (4)
  - Pancreatic carcinoma [Fatal]
  - Metastasis [Fatal]
  - Incorrect route of drug administration [Unknown]
  - Drug ineffective [Unknown]
